FAERS Safety Report 18037095 (Version 2)
Quarter: 2020Q3

REPORT INFORMATION
  Report Type: Spontaneous
  Country: JP (occurrence: JP)
  Receive Date: 20200717
  Receipt Date: 20200814
  Transmission Date: 20201103
  Serious: No
  Sender: FDA-Public Use
  Company Number: JP-JNJFOC-20200715375

PATIENT

DRUGS (1)
  1. TRAMCET [Suspect]
     Active Substance: ACETAMINOPHEN\TRAMADOL
     Indication: PRODUCT USED FOR UNKNOWN INDICATION
     Dosage: UNKNOWN
     Route: 048

REACTIONS (1)
  - Haemoglobin decreased [Unknown]
